FAERS Safety Report 4608068-4 (Version None)
Quarter: 2005Q2

REPORT INFORMATION
  Report Type: 
  Country: None (occurrence: None)
  Receive Date: 20050303
  Receipt Date: 20041104
  Transmission Date: 20051028
  Serious: No
  Sender: FDA-Public Use
  Company Number: 210231

PATIENT
  Age: 44 Year
  Sex: Female
  Weight: 69.8 kg

DRUGS (21)
  1. XOLAIR [Suspect]
     Indication: ASTHMA
     Dosage: 225 MG, Q2W, SUBCUTANEOUS
     Route: 058
  2. PREDNISONE TAB [Concomitant]
  3. PULMICORT (BUDENOSIDE) [Concomitant]
  4. SEREVENT DISKUS (SALMETEROL XINAFOATE) [Concomitant]
  5. ATROVENT [Concomitant]
  6. NASONEX [Concomitant]
  7. ALLEGRA [Concomitant]
  8. ALBUTEROL (ALBUTEROL SULFATE, ALBUTEROL) [Concomitant]
  9. XOPENEX [Concomitant]
  10. CARDIZEM [Concomitant]
  11. SYNTHROID [Concomitant]
  12. PREVACID [Concomitant]
  13. ZADITEN [Concomitant]
  14. ZOFRAN [Concomitant]
  15. ZYRTEC [Concomitant]
  16. BENADRYL [Concomitant]
  17. NTG (NITROGLYCERIN) [Concomitant]
  18. ATIVAN [Concomitant]
  19. EPINEPHRINE [Concomitant]
  20. CARAFATE [Concomitant]
  21. PATANOL [Concomitant]

REACTIONS (3)
  - INJECTION SITE PAIN [None]
  - MIGRAINE [None]
  - PAIN IN EXTREMITY [None]
